FAERS Safety Report 12538001 (Version 3)
Quarter: 2016Q3

REPORT INFORMATION
  Report Type: Report from Study
  Country: JP (occurrence: JP)
  Receive Date: 20160707
  Receipt Date: 20160829
  Transmission Date: 20161109
  Serious: Yes (Hospitalization)
  Sender: FDA-Public Use
  Company Number: JP-DSJP-DSJ-2016-122126

PATIENT

DRUGS (21)
  1. OLMETEC [Concomitant]
     Active Substance: OLMESARTAN MEDOXOMIL
     Dosage: 20MG/DAY
     Route: 048
     Dates: start: 20160326, end: 20160401
  2. PREDONINE [Suspect]
     Active Substance: PREDNISOLONE\PREDNISOLONE ACETATE\PREDNISOLONE SODIUM SUCCINATE
     Dosage: 15MG/DAY
     Route: 048
     Dates: start: 20160425, end: 20160501
  3. PREDONINE [Suspect]
     Active Substance: PREDNISOLONE\PREDNISOLONE ACETATE\PREDNISOLONE SODIUM SUCCINATE
     Dosage: 7.5MG/DAY
     Route: 048
     Dates: start: 20160601, end: 20160615
  4. PREDONINE [Suspect]
     Active Substance: PREDNISOLONE\PREDNISOLONE ACETATE\PREDNISOLONE SODIUM SUCCINATE
     Dosage: 5MG/DAY
     Route: 048
     Dates: start: 20160616, end: 20160629
  5. FAMOTIDINE. [Concomitant]
     Active Substance: FAMOTIDINE
     Dosage: 20MG/DAY
     Route: 048
     Dates: start: 20160408
  6. FUROSEMIDE. [Concomitant]
     Active Substance: FUROSEMIDE
     Dosage: 20MG/DAY
     Route: 048
     Dates: start: 20160527
  7. PREDONINE [Suspect]
     Active Substance: PREDNISOLONE\PREDNISOLONE ACETATE\PREDNISOLONE SODIUM SUCCINATE
     Dosage: 12.5MG/DAY
     Route: 048
     Dates: start: 20160502, end: 20160515
  8. PREDONINE [Suspect]
     Active Substance: PREDNISOLONE\PREDNISOLONE ACETATE\PREDNISOLONE SODIUM SUCCINATE
     Dosage: 10MG/DAY
     Route: 048
     Dates: start: 20160408, end: 20160417
  9. PREDONINE [Suspect]
     Active Substance: PREDNISOLONE\PREDNISOLONE ACETATE\PREDNISOLONE SODIUM SUCCINATE
     Dosage: 20MG/DAY
     Route: 048
     Dates: start: 20160418, end: 20160421
  10. EDOXABAN [Suspect]
     Active Substance: EDOXABAN TOSYLATE
     Indication: ATRIAL FIBRILLATION
     Dosage: 60 MG, QD
     Route: 048
     Dates: start: 20160305, end: 20160312
  11. WARFARIN POTASSIUM [Concomitant]
     Active Substance: WARFARIN POTASSIUM
     Dosage: 3MG/DAY
     Route: 048
     Dates: start: 20160303, end: 20160304
  12. GLICLAZIDE [Concomitant]
     Active Substance: GLICLAZIDE
     Dosage: 40MG/DAY
     Route: 048
     Dates: end: 20160609
  13. JANUVIA [Concomitant]
     Active Substance: SITAGLIPTIN PHOSPHATE
     Dosage: 50MG/DAY
     Route: 048
     Dates: end: 20160616
  14. FUROSEMIDE. [Concomitant]
     Active Substance: FUROSEMIDE
     Dosage: 20MG/DAY
     Route: 048
     Dates: start: 20160303, end: 20160401
  15. FUROSEMIDE. [Concomitant]
     Active Substance: FUROSEMIDE
     Dosage: 10MG/DAY
     Route: 048
     Dates: start: 20160617, end: 20160626
  16. PREDONINE [Suspect]
     Active Substance: PREDNISOLONE\PREDNISOLONE ACETATE\PREDNISOLONE SODIUM SUCCINATE
     Dosage: 17.5MG/DAY
     Route: 048
     Dates: start: 20160422, end: 20160424
  17. OLOPATADINE HYDROCHLORIDE. [Concomitant]
     Active Substance: OLOPATADINE HYDROCHLORIDE
     Dosage: 10MG/DAY
     Route: 048
     Dates: start: 20160418
  18. PIOGLITAZONE. [Concomitant]
     Active Substance: PIOGLITAZONE
     Dosage: 30MG/DAY
     Route: 048
     Dates: end: 20160609
  19. AVAPRO [Concomitant]
     Active Substance: IRBESARTAN
     Dosage: 50MG/DAY
     Route: 048
     Dates: start: 20160304, end: 20160325
  20. PREDONINE [Suspect]
     Active Substance: PREDNISOLONE\PREDNISOLONE ACETATE\PREDNISOLONE SODIUM SUCCINATE
     Dosage: 10MG/DAY
     Route: 048
     Dates: start: 20160516, end: 20160531
  21. FEXOFENADINE HYDROCHLORIDE. [Concomitant]
     Active Substance: FEXOFENADINE HYDROCHLORIDE
     Dosage: 120MG/DAY
     Route: 048
     Dates: start: 20160408, end: 20160418

REACTIONS (3)
  - Melaena [Recovered/Resolved]
  - Erythema multiforme [Not Recovered/Not Resolved]
  - Diabetes mellitus [Recovering/Resolving]

NARRATIVE: CASE EVENT DATE: 20160305
